FAERS Safety Report 17938501 (Version 1)
Quarter: 2020Q2

REPORT INFORMATION
  Report Type: Other
  Country: CH (occurrence: CH)
  Receive Date: 20200624
  Receipt Date: 20200624
  Transmission Date: 20200714
  Serious: Yes (Other)
  Sender: FDA-Public Use
  Company Number: CH-DEXPHARM-20200528

PATIENT
  Age: 50 Year
  Sex: Female

DRUGS (8)
  1. VELPATASVIR [Interacting]
     Active Substance: VELPATASVIR
     Indication: HEPATITIS C
     Dates: start: 201804
  2. SOFOSBUVIR [Suspect]
     Active Substance: SOFOSBUVIR
     Indication: HEPATITIS C
     Dates: start: 201804
  3. VOXILAPREVIR [Interacting]
     Active Substance: VOXILAPREVIR
     Dates: start: 201804
  4. RIBAVIRIN. [Interacting]
     Active Substance: RIBAVIRIN
     Indication: HEPATITIS C
  5. GLECAPREVIR [Interacting]
     Active Substance: GLECAPREVIR
     Indication: HEPATITIS C
  6. PIBRENTASVIR [Interacting]
     Active Substance: PIBRENTASVIR
     Indication: HEPATITIS C
  7. SOFOSBUVIR [Interacting]
     Active Substance: SOFOSBUVIR
     Indication: HEPATITIS C
  8. OMEPRAZOLE. [Interacting]
     Active Substance: OMEPRAZOLE
     Indication: GASTROOESOPHAGEAL REFLUX DISEASE

REACTIONS (1)
  - Drug interaction [Recovered/Resolved]
